FAERS Safety Report 21301462 (Version 1)
Quarter: 2022Q3

REPORT INFORMATION
  Report Type: Spontaneous
  Country: IT (occurrence: IT)
  Receive Date: 20220907
  Receipt Date: 20220907
  Transmission Date: 20221027
  Serious: Yes (Other)
  Sender: FDA-Public Use
  Company Number: IT-STRIDES ARCOLAB LIMITED-2022SP011173

PATIENT
  Age: 70 Year
  Sex: Female

DRUGS (7)
  1. MEMANTINE [Suspect]
     Active Substance: MEMANTINE
     Indication: Cognitive disorder
     Dosage: UNK
     Route: 065
  2. PALIPERIDONE [Concomitant]
     Active Substance: PALIPERIDONE
     Indication: Delusion of parasitosis
     Dosage: 150 MILLIGRAM (LONG-ACTING INJECTABLE PALIPERIDONE)
     Route: 030
  3. PALIPERIDONE [Concomitant]
     Active Substance: PALIPERIDONE
     Dosage: 100 MILLIGRAM (AFTER 7 DAYS)
     Route: 030
  4. PALIPERIDONE [Concomitant]
     Active Substance: PALIPERIDONE
     Dosage: UNK, (INJECTION) (INVOLUNTARY TREATMENT AFTER A WEEK)
     Route: 030
  5. ATENOLOL [Concomitant]
     Active Substance: ATENOLOL
     Indication: Hypertension
     Dosage: UNK
     Route: 065
  6. RISPERIDONE [Concomitant]
     Active Substance: RISPERIDONE
     Indication: Delusion of parasitosis
     Dosage: UNK
     Route: 065
  7. FOLIC ACID [Concomitant]
     Active Substance: FOLIC ACID
     Indication: Cognitive disorder
     Dosage: UNK
     Route: 065

REACTIONS (3)
  - Restlessness [Unknown]
  - Agitation [Unknown]
  - Irritability [Unknown]
